FAERS Safety Report 9061646 (Version 1)
Quarter: 2013Q1

REPORT INFORMATION
  Report Type: Spontaneous
  Country: US (occurrence: None)
  Receive Date: 20130122
  Receipt Date: 20130122
  Transmission Date: 20140127
  Serious: Yes (Death)
  Sender: FDA-Public Use
  Company Number: AUR-APL-2013-00420

PATIENT
  Age: 39 Year
  Sex: Male

DRUGS (7)
  1. AMLODIPINE (AMLODIPINE) [Suspect]
     Indication: PRODUCT USED FOR UNKNOWN INDICATION
     Dosage: ORAL
     Route: 048
  2. METOPROLOL (METOPROLOL) [Suspect]
     Dosage: UNKNOWN
  3. METFORMIN (METFORMIN) [Suspect]
     Dosage: UNKNOWN
  4. HYDROCHLOROTHIAZIDE (HYDROCHLOROTHIAZIDE) [Suspect]
     Dosage: UNKNOWN
  5. POTASSIUM CHLORIDE (POTASSIUM CHLORIDE) [Suspect]
     Dosage: UNKNOWN
  6. FUROSEMIDE (FUROSEMIDE) [Suspect]
     Dosage: UNKNOWN
  7. ACETAMINOPHEN (PARACETAMOL) [Suspect]
     Dosage: UNKNOWN

REACTIONS (2)
  - Completed suicide [None]
  - Toxicity to various agents [None]
